FAERS Safety Report 10240248 (Version 1)
Quarter: 2014Q2

REPORT INFORMATION
  Report Type: Spontaneous
  Country: IN (occurrence: IN)
  Receive Date: 20140617
  Receipt Date: 20140617
  Transmission Date: 20141212
  Serious: Yes (Other)
  Sender: FDA-Public Use
  Company Number: PHHY2014IN071469

PATIENT
  Sex: Female

DRUGS (5)
  1. DIGOXIN [Suspect]
     Route: 064
  2. FUROSEMIDE [Suspect]
     Route: 064
  3. HEPARIN [Suspect]
     Route: 064
  4. HYDROXYPROGESTERONE CAPROATE [Suspect]
     Route: 064
  5. ANTICOAGULANTS [Suspect]
     Route: 064

REACTIONS (4)
  - Low birth weight baby [Unknown]
  - Premature baby [Unknown]
  - Bradycardia foetal [Unknown]
  - Foetal exposure during pregnancy [Unknown]
